FAERS Safety Report 7200160-3 (Version None)
Quarter: 2010Q4

REPORT INFORMATION
  Report Type: 
  Country: None (occurrence: None)
  Receive Date: 20101228
  Receipt Date: 20101110
  Transmission Date: 20110411
  Serious: No
  Sender: FDA-Public Use
  Company Number: US-JNJFOC-20101104208

PATIENT
  Sex: Male
  Weight: 68.04 kg

DRUGS (8)
  1. INVEGA SUSTENNA [Suspect]
     Indication: BIPOLAR I DISORDER
     Route: 030
  2. INVEGA SUSTENNA [Suspect]
     Route: 030
  3. INVEGA [Suspect]
     Indication: BIPOLAR I DISORDER
     Route: 048
  4. ATENOLOL [Concomitant]
     Indication: CARDIAC DISORDER
     Route: 048
  5. DIGOXIN [Concomitant]
     Indication: CARDIAC DISORDER
     Route: 048
  6. COUMADIN [Concomitant]
     Indication: ANTICOAGULANT THERAPY
     Route: 048
  7. ALDACTONE [Concomitant]
     Indication: DIURETIC THERAPY
     Route: 048
  8. LASIX [Concomitant]
     Indication: DIURETIC THERAPY
     Route: 048

REACTIONS (10)
  - ANGER [None]
  - APATHY [None]
  - ASTHENIA [None]
  - DIZZINESS [None]
  - DYSPHONIA [None]
  - DYSURIA [None]
  - FLAT AFFECT [None]
  - LETHARGY [None]
  - MYALGIA [None]
  - PAIN [None]
